FAERS Safety Report 4888955-2 (Version None)
Quarter: 2005Q4

REPORT INFORMATION
  Report Type: 
  Country: None (occurrence: None)
  Receive Date: 20051215
  Receipt Date: 20051012
  Transmission Date: 20060501
  Serious: Yes (Hospitalization, Other)
  Sender: FDA-Public Use
  Company Number: 2005085271

PATIENT
  Age: 42 Year
  Sex: Female
  Weight: 99.7913 kg

DRUGS (4)
  1. BEXTRA [Suspect]
     Indication: ARTHRITIS
     Dosage: 20 MG (20 MG,1 IN 1D),ORAL
     Route: 048
     Dates: end: 20050401
  2. PROZAC [Concomitant]
  3. CLARINEX [Concomitant]
  4. FLONASE [Concomitant]

REACTIONS (8)
  - ASTHMA [None]
  - BRONCHITIS [None]
  - LIPOMA [None]
  - PNEUMONIA [None]
  - PRURITUS [None]
  - SKIN HAEMORRHAGE [None]
  - SKIN LESION [None]
  - SUTURE RELATED COMPLICATION [None]
